FAERS Safety Report 5655541-6 (Version None)
Quarter: 2008Q1

REPORT INFORMATION
  Report Type: 
  Country: None (occurrence: None)
  Receive Date: 20080307
  Receipt Date: 20080226
  Transmission Date: 20080703
  Serious: Yes (Disabling)
  Sender: FDA-Public Use
  Company Number: FR-ROCHE-550264

PATIENT

DRUGS (3)
  1. PEG-INTERFERON ALFA 2A (RO 25-8310) [Suspect]
     Dosage: DOSING TAKEN FROM AIMS
     Route: 065
     Dates: end: 20040906
  2. GLEEVEC [Suspect]
     Route: 065
     Dates: end: 20040810
  3. GLEEVEC [Suspect]
     Dosage: DOSING REPORTED AS LOWERED
     Route: 065
     Dates: start: 20040823

REACTIONS (5)
  - DERMATITIS EXFOLIATIVE [None]
  - ECZEMA [None]
  - EOSINOPHILIA [None]
  - ERYTHEMA [None]
  - PRURITUS [None]
